FAERS Safety Report 10735974 (Version 1)
Quarter: 2015Q1

REPORT INFORMATION
  Report Type: Spontaneous
  Country: US (occurrence: US)
  Receive Date: 20150126
  Receipt Date: 20150126
  Transmission Date: 20150721
  Serious: No
  Sender: FDA-Public Use
  Company Number: US-BIOGENIDEC-2015BI007640

PATIENT
  Age: 58 Year
  Sex: Female

DRUGS (7)
  1. NEURONTIN [Concomitant]
     Active Substance: GABAPENTIN
  2. GABAPENTIN. [Concomitant]
     Active Substance: GABAPENTIN
  3. TECFIDERA [Suspect]
     Active Substance: DIMETHYL FUMARATE
     Indication: MULTIPLE SCLEROSIS
     Route: 048
  4. TEMAZEPAM. [Concomitant]
     Active Substance: TEMAZEPAM
  5. BACLOFEN. [Concomitant]
     Active Substance: BACLOFEN
  6. HYDROCODONE BITARTRATE AND ACETAMINOPHEN [Concomitant]
     Active Substance: ACETAMINOPHEN\HYDROCODONE BITARTRATE
  7. VICODIN [Concomitant]
     Active Substance: ACETAMINOPHEN\HYDROCODONE BITARTRATE

REACTIONS (1)
  - Deafness unilateral [Unknown]

NARRATIVE: CASE EVENT DATE: 201411
